FAERS Safety Report 6184245-9 (Version None)
Quarter: 2009Q2

REPORT INFORMATION
  Report Type: 
  Country: None (occurrence: None)
  Receive Date: 20090508
  Receipt Date: 20090506
  Transmission Date: 20091009
  Serious: Yes (Death)
  Sender: FDA-Public Use
  Company Number: PHHY2009CA16980

PATIENT
  Sex: Female

DRUGS (4)
  1. CLOZARIL [Suspect]
     Indication: SCHIZOPHRENIA
     Dosage: 100 MG/DAY
     Route: 048
     Dates: start: 20080908, end: 20090302
  2. CLOZARIL [Suspect]
     Indication: SCHIZOAFFECTIVE DISORDER
  3. RISPERDAL [Concomitant]
     Dosage: 1 MG AM, 2 MG HS
  4. LITHIUM CARBONATE [Concomitant]
     Dosage: 300 GM AM, 600 GM HS

REACTIONS (2)
  - COMPLETED SUICIDE [None]
  - DROWNING [None]
